FAERS Safety Report 24313511 (Version 1)
Quarter: 2024Q3

REPORT INFORMATION
  Report Type: Spontaneous
  Country: BG (occurrence: BG)
  Receive Date: 20240912
  Receipt Date: 20240912
  Transmission Date: 20241016
  Serious: Yes (Other)
  Sender: GLAXOSMITHKLINE
  Company Number: BG-GSK-BG2024GSK112212

PATIENT

DRUGS (7)
  1. PROPAFENONE [Suspect]
     Active Substance: PROPAFENONE
     Indication: Hypertension
     Dosage: 150 MG, QD, AS NEEDED
  2. PROPAFENONE [Suspect]
     Active Substance: PROPAFENONE
     Dosage: 150 MG, BID
  3. LISINOPRIL AND HYDROCHLOROTHIAZIDE [Suspect]
     Active Substance: HYDROCHLOROTHIAZIDE\LISINOPRIL
     Indication: Hypertension
     Dosage: 20/12.5 MG HALF A TABLET DAILY
  4. BISOPROLOL [Suspect]
     Active Substance: BISOPROLOL\BISOPROLOL FUMARATE
     Indication: Hypertension
     Dosage: 5 MG, QD
  5. CARBAMAZEPINE [Concomitant]
     Active Substance: CARBAMAZEPINE
     Indication: Trigeminal neuralgia
     Dosage: 200 MG, AS NEEDED
  6. BENFOTIAMINE;PYRIDOXINE HYDROCHLORIDE [Concomitant]
     Indication: Trigeminal neuralgia
     Dosage: WHEN NEEDED
  7. CYANOCOBALAMIN [Concomitant]
     Active Substance: CYANOCOBALAMIN
     Indication: Trigeminal neuralgia
     Dosage: WHEN NEEDED

REACTIONS (20)
  - Skin cancer [Unknown]
  - Basal cell carcinoma [Unknown]
  - Keratoacanthoma [Unknown]
  - Squamous cell carcinoma [Unknown]
  - Epidermal necrosis [Unknown]
  - Skin lesion [Unknown]
  - Pain of skin [Unknown]
  - Pruritus [Unknown]
  - Purulent discharge [Unknown]
  - Neoplasm skin [Unknown]
  - Ulcer [Unknown]
  - Scab [Unknown]
  - Hyperkeratosis [Unknown]
  - Onychomycosis [Unknown]
  - Onycholysis [Unknown]
  - Lymphadenopathy [Unknown]
  - Acanthosis [Unknown]
  - Chronic papillomatous dermatitis [Unknown]
  - Parakeratosis [Unknown]
  - Keratosis pilaris [Unknown]
